FAERS Safety Report 4762927-0 (Version None)
Quarter: 2005Q3

REPORT INFORMATION
  Report Type: 
  Country: None (occurrence: None)
  Receive Date: 20050907
  Receipt Date: 20050829
  Transmission Date: 20060218
  Serious: Yes (Other)
  Sender: FDA-Public Use
  Company Number: PL-NOVOPROD-246660

PATIENT
  Age: 66 Year
  Sex: Male
  Weight: 109 kg

DRUGS (4)
  1. NOVOMIX 30 PENFILL [Suspect]
     Dosage: 50 IE, UNK
     Dates: start: 20050730
  2. SIOFOR [Concomitant]
     Dosage: 2 X 500 MG
  3. POLPRAZOL [Concomitant]
     Dosage: 20 MG, UNK
  4. METOCARD [Concomitant]
     Dosage: 25 MG, UNK

REACTIONS (3)
  - DERMATITIS ALLERGIC [None]
  - FACE OEDEMA [None]
  - URTICARIA [None]
